FAERS Safety Report 16286306 (Version 1)
Quarter: 2019Q2

REPORT INFORMATION
  Report Type: Spontaneous
  Country: US (occurrence: US)
  Receive Date: 20190508
  Receipt Date: 20190508
  Transmission Date: 20190711
  Serious: Yes (Death)
  Sender: FDA-Public Use
  Company Number: US-ROCHE-2314056

PATIENT
  Sex: Female

DRUGS (6)
  1. RITUXAN [Suspect]
     Active Substance: RITUXIMAB
     Dosage: TOTAL DOSE 675 MG IN WEEK, ONGOING: NO
     Route: 042
     Dates: start: 20190328
  2. IMBRUVICA [Concomitant]
     Active Substance: IBRUTINIB
  3. METFORMIN [Concomitant]
     Active Substance: METFORMIN HYDROCHLORIDE
     Route: 065
  4. ALLOPURINOL. [Concomitant]
     Active Substance: ALLOPURINOL
     Route: 065
  5. DECADRON [Concomitant]
     Active Substance: DEXAMETHASONE
  6. RITUXAN [Suspect]
     Active Substance: RITUXIMAB
     Indication: NON-HODGKIN^S LYMPHOMA
     Dosage: TOTAL DOSE 675 MG IN WEEK, ONGOING: NO
     Route: 042
     Dates: start: 20190328

REACTIONS (1)
  - Death [Fatal]
